FAERS Safety Report 10476321 (Version 8)
Quarter: 2019Q1

REPORT INFORMATION
  Report Type: Spontaneous
  Country: US (occurrence: US)
  Receive Date: 20140925
  Receipt Date: 20190129
  Transmission Date: 20190417
  Serious: No
  Sender: FDA-Public Use
  Company Number: US-PFIZER INC-2014261688

PATIENT
  Age: 59 Year
  Sex: Female
  Weight: 63.49 kg

DRUGS (6)
  1. LYRICA [Suspect]
     Active Substance: PREGABALIN
     Indication: MIGRAINE WITHOUT AURA
  2. LYRICA [Suspect]
     Active Substance: PREGABALIN
     Indication: ROUTINE HEALTH MAINTENANCE
  3. METOPROLOL SUCCINATE ER [Concomitant]
     Active Substance: METOPROLOL SUCCINATE
     Dosage: 50 MG, UNK
     Dates: start: 2006
  4. LYRICA [Suspect]
     Active Substance: PREGABALIN
     Indication: PAIN
     Dosage: 75 MG, 3X/DAY
     Route: 048
     Dates: start: 2006
  5. LYRICA [Suspect]
     Active Substance: PREGABALIN
     Indication: TRIGEMINAL NEURALGIA
  6. LYRICA [Suspect]
     Active Substance: PREGABALIN
     Indication: ARTERIOVENOUS MALFORMATION

REACTIONS (1)
  - Drug effect incomplete [Unknown]
